FAERS Safety Report 15250789 (Version 1)
Quarter: 2018Q3

REPORT INFORMATION
  Report Type: Spontaneous
  Country: BR (occurrence: BR)
  Receive Date: 20180807
  Receipt Date: 20180807
  Transmission Date: 20181010
  Serious: Yes (Other)
  Sender: FDA-Public Use
  Company Number: PHHY2018BR061950

PATIENT
  Sex: Female
  Weight: 44 kg

DRUGS (3)
  1. ACETYLSALICYLIC ACID [Suspect]
     Active Substance: ASPIRIN
     Indication: PRODUCT USED FOR UNKNOWN INDICATION
     Dosage: 1 DF, QD (AFTER LUNCH)
     Route: 065
  2. SINVASTACOR [Suspect]
     Active Substance: SIMVASTATIN
     Indication: STENT PLACEMENT
     Dosage: 20 MG, QD (AT NIGHT)
     Route: 048
  3. LOSARTAN. [Suspect]
     Active Substance: LOSARTAN
     Indication: PRODUCT USED FOR UNKNOWN INDICATION
     Dosage: 2 DF, QD
     Route: 065

REACTIONS (5)
  - Osteoporosis [Recovering/Resolving]
  - Diverticulitis [Recovering/Resolving]
  - Blood cholesterol decreased [Recovering/Resolving]
  - Haemangioma of liver [Recovering/Resolving]
  - Renal cyst [Recovering/Resolving]
